FAERS Safety Report 20211919 (Version 1)
Quarter: 2021Q4

REPORT INFORMATION
  Report Type: Spontaneous
  Country: JP (occurrence: JP)
  Receive Date: 20211221
  Receipt Date: 20211221
  Transmission Date: 20220303
  Serious: Yes (Other)
  Sender: FDA-Public Use
  Company Number: JP-ASTELLAS-2021JP024432

PATIENT
  Sex: Male

DRUGS (2)
  1. MIRABEGRON [Suspect]
     Active Substance: MIRABEGRON
     Indication: Hypertonic bladder
     Dosage: 50 MG, ONCE DAILY, IN THE MORNING
     Route: 048
     Dates: start: 2019
  2. TADALAFIL [Suspect]
     Active Substance: TADALAFIL
     Indication: Pollakiuria
     Dosage: UNK UNK, UNKNOWN FREQ.
     Route: 065

REACTIONS (5)
  - Diabetes mellitus [Unknown]
  - Pollakiuria [Unknown]
  - Dysuria [Unknown]
  - Somnolence [Unknown]
  - Hypertension [Unknown]
